FAERS Safety Report 18800743 (Version 1)
Quarter: 2021Q1

REPORT INFORMATION
  Report Type: Spontaneous
  Country: PL (occurrence: PL)
  Receive Date: 20210128
  Receipt Date: 20210128
  Transmission Date: 20210419
  Serious: Yes (Other)
  Sender: FDA-Public Use
  Company Number: PL-MYLANLABS-2021M1005024

PATIENT
  Age: 14 Year
  Sex: Female
  Weight: 62 kg

DRUGS (4)
  1. HEVIRAN /00587301/ [Suspect]
     Active Substance: ACYCLOVIR
     Indication: PROPHYLAXIS
     Dosage: 1200 MILLIGRAM, QD (400 MILLIGRAM, 3 TIMES A DAY)
     Route: 048
     Dates: start: 20200903
  2. PREVYMIS [Suspect]
     Active Substance: LETERMOVIR
     Indication: PROPHYLAXIS
     Dosage: 240 MILLIGRAM
     Dates: start: 20200915
  3. VORICONAZOLE. [Suspect]
     Active Substance: VORICONAZOLE
     Indication: PROPHYLAXIS
     Dosage: 400 MILLIGRAM, QD (200 MILLIGRAM, TWO TIMES A ADAY)
     Dates: start: 20200903
  4. CICLOSPORIN [Suspect]
     Active Substance: CYCLOSPORINE
     Indication: PRODUCT USED FOR UNKNOWN INDICATION
     Dosage: 120 MILLIGRAM, QD (60 MILLIGRAM, 2 TIMES A DAY)
     Dates: start: 20200915

REACTIONS (2)
  - Pneumonia [Unknown]
  - Product administered to patient of inappropriate age [Unknown]

NARRATIVE: CASE EVENT DATE: 20200915
